FAERS Safety Report 6270496-1 (Version None)
Quarter: 2009Q3

REPORT INFORMATION
  Report Type: 
  Country: None (occurrence: None)
  Receive Date: 20090716
  Receipt Date: 20090709
  Transmission Date: 20100115
  Serious: Yes (Disabling)
  Sender: FDA-Public Use
  Company Number: JP-AVENTIS-200911942JP

PATIENT

DRUGS (1)
  1. LANTUS [Suspect]

REACTIONS (1)
  - RENAL IMPAIRMENT [None]
